FAERS Safety Report 5648084-7 (Version None)
Quarter: 2008Q1

REPORT INFORMATION
  Report Type: 
  Country: None (occurrence: None)
  Receive Date: 20080229
  Receipt Date: 20080229
  Transmission Date: 20080703
  Serious: No
  Sender: FDA-Public Use
  Company Number: None

PATIENT
  Age: 78 Year
  Sex: Male
  Weight: 77.1 kg

DRUGS (1)
  1. TRAVOPROST [Suspect]
     Indication: GLAUCOMA
     Dosage: 1DROPS AT BEDTIME EYE
     Dates: start: 20071029, end: 20080225

REACTIONS (1)
  - RASH PRURITIC [None]
